FAERS Safety Report 15605696 (Version 1)
Quarter: 2018Q4

REPORT INFORMATION
  Report Type: Spontaneous
  Country: US (occurrence: US)
  Receive Date: 20181112
  Receipt Date: 20181112
  Transmission Date: 20190205
  Serious: Yes (Other)
  Sender: FDA-Public Use
  Company Number: US-CIPLA LTD.-2018US22491

PATIENT

DRUGS (4)
  1. SALSALATE. [Suspect]
     Active Substance: SALSALATE
     Indication: ARTHRALGIA
     Dosage: 3 G, PER DAY
     Route: 065
  2. WARFARIN [Suspect]
     Active Substance: WARFARIN
     Indication: PRODUCT USED FOR UNKNOWN INDICATION
     Dosage: UNK
     Route: 065
  3. SALSALATE. [Suspect]
     Active Substance: SALSALATE
     Indication: BACK PAIN
  4. WARFARIN [Suspect]
     Active Substance: WARFARIN
     Dosage: 50% DECREASED
     Route: 065

REACTIONS (4)
  - Potentiating drug interaction [Unknown]
  - International normalised ratio increased [Recovered/Resolved]
  - Contusion [Recovered/Resolved]
  - Haemorrhage [Unknown]
